FAERS Safety Report 24131722 (Version 1)
Quarter: 2024Q3

REPORT INFORMATION
  Report Type: Spontaneous
  Country: US (occurrence: None)
  Receive Date: 20240723
  Receipt Date: 20240723
  Transmission Date: 20241016
  Serious: Yes (Hospitalization)
  Sender: Public
  Company Number: None

PATIENT
  Age: 81 Year
  Sex: Male
  Weight: 49.86 kg

DRUGS (4)
  1. PROVENGE [Suspect]
     Active Substance: SIPULEUCEL-T
     Indication: Prostate cancer
     Route: 041
     Dates: start: 20240617, end: 20240715
  2. FAMOTIDINE [Concomitant]
     Active Substance: FAMOTIDINE
  3. DIPHENHYDRAMINE [Concomitant]
     Active Substance: DIPHENHYDRAMINE
  4. ACETAMINOPHEN [Concomitant]
     Active Substance: ACETAMINOPHEN

REACTIONS (4)
  - Chills [None]
  - Nausea [None]
  - Infusion related reaction [None]
  - Atrial fibrillation [None]

NARRATIVE: CASE EVENT DATE: 20240715
